FAERS Safety Report 10426518 (Version 3)
Quarter: 2019Q2

REPORT INFORMATION
  Report Type: Spontaneous
  Country: US (occurrence: US)
  Receive Date: 20140903
  Receipt Date: 20190618
  Transmission Date: 20190711
  Serious: Yes (Other)
  Sender: FDA-Public Use
  Company Number: US-PFIZER INC-2014242149

PATIENT
  Age: 58 Year
  Sex: Female

DRUGS (1)
  1. PRISTIQ EXTENDED-RELEASE [Suspect]
     Active Substance: DESVENLAFAXINE SUCCINATE
     Dosage: 50 MG, UNK

REACTIONS (5)
  - Dementia Alzheimer^s type [Unknown]
  - Drug dependence [Unknown]
  - Irritability [Unknown]
  - Depression [Unknown]
  - Violence-related symptom [Unknown]
